FAERS Safety Report 10582942 (Version 2)
Quarter: 2014Q4

REPORT INFORMATION
  Report Type: Spontaneous
  Country: FR (occurrence: FR)
  Receive Date: 20141114
  Receipt Date: 20141205
  Transmission Date: 20150529
  Serious: Yes (Death, Hospitalization)
  Sender: FDA-Public Use
  Company Number: FR-ROCHE-1490663

PATIENT
  Age: 71 Year
  Sex: Male

DRUGS (13)
  1. LEVACT (FRANCE) [Suspect]
     Active Substance: BENDAMUSTINE HYDROCHLORIDE
     Route: 042
     Dates: start: 20120928, end: 20121108
  2. FLUDARABINE PHOSPHATE. [Suspect]
     Active Substance: FLUDARABINE PHOSPHATE
     Indication: B-CELL LYMPHOMA
     Route: 042
     Dates: start: 2007, end: 2008
  3. CHLORAMINOPHENE [Suspect]
     Active Substance: CHLORAMBUCIL
     Dosage: SIX COURSES WITH PARTIAL REMISSION
     Route: 048
     Dates: start: 201105, end: 201109
  4. PEMETREXED [Concomitant]
     Active Substance: PEMETREXED
     Route: 065
     Dates: start: 20140319
  5. ENDOXAN [Suspect]
     Active Substance: CYCLOPHOSPHAMIDE
     Indication: B-CELL LYMPHOMA
     Route: 042
     Dates: start: 2007, end: 2008
  6. CHLORAMINOPHENE [Suspect]
     Active Substance: CHLORAMBUCIL
     Indication: B-CELL LYMPHOMA
     Route: 042
     Dates: start: 201105, end: 2012
  7. CARBOPLATIN. [Concomitant]
     Active Substance: CARBOPLATIN
     Route: 065
     Dates: start: 20140416
  8. MABTHERA [Suspect]
     Active Substance: RITUXIMAB
     Dosage: SIX COURSES WITH PARTIAL REMISSION
     Route: 042
     Dates: start: 201105, end: 201109
  9. MABTHERA [Suspect]
     Active Substance: RITUXIMAB
     Indication: B-CELL LYMPHOMA
     Route: 042
     Dates: start: 20110509, end: 20121108
  10. LEVACT (FRANCE) [Suspect]
     Active Substance: BENDAMUSTINE HYDROCHLORIDE
     Indication: B-CELL LYMPHOMA
     Route: 042
     Dates: start: 20120927, end: 20121108
  11. CHLORAMINOPHENE [Suspect]
     Active Substance: CHLORAMBUCIL
     Indication: B-CELL LYMPHOMA
     Route: 048
     Dates: start: 200204, end: 200404
  12. CARBOPLATIN. [Concomitant]
     Active Substance: CARBOPLATIN
     Route: 065
     Dates: start: 20140319
  13. PEMETREXED [Concomitant]
     Active Substance: PEMETREXED
     Route: 065
     Dates: start: 20140416

REACTIONS (2)
  - Lung neoplasm malignant [Fatal]
  - Transitional cell carcinoma [Recovered/Resolved]

NARRATIVE: CASE EVENT DATE: 201307
